FAERS Safety Report 15676064 (Version 1)
Quarter: 2018Q4

REPORT INFORMATION
  Report Type: Spontaneous
  Country: IT (occurrence: IT)
  Receive Date: 20181130
  Receipt Date: 20181130
  Transmission Date: 20190205
  Serious: Yes (Hospitalization)
  Sender: FDA-Public Use
  Company Number: IT-PFIZER INC-2018487694

PATIENT
  Age: 49 Year
  Sex: Female

DRUGS (3)
  1. DAPAROX [PAROXETINE MESILATE] [Suspect]
     Active Substance: PAROXETINE MESYLATE
  2. SONIREM [Suspect]
     Active Substance: ZOLPIDEM TARTRATE
  3. XANAX [Suspect]
     Active Substance: ALPRAZOLAM

REACTIONS (5)
  - Intentional self-injury [Unknown]
  - Drug abuse [Unknown]
  - Sopor [Unknown]
  - Speech disorder [Unknown]
  - Alcohol abuse [Unknown]

NARRATIVE: CASE EVENT DATE: 20180807
